FAERS Safety Report 20706117 (Version 3)
Quarter: 2022Q2

REPORT INFORMATION
  Report Type: Spontaneous
  Country: US (occurrence: US)
  Receive Date: 20220413
  Receipt Date: 20220627
  Transmission Date: 20220721
  Serious: Yes (Other)
  Sender: FDA-Public Use
  Company Number: ALC2022US001559

PATIENT
  Sex: Female

DRUGS (1)
  1. SYSTANE ULTRA [Suspect]
     Active Substance: POLYETHYLENE GLYCOL 400\PROPYLENE GLYCOL
     Indication: Product used for unknown indication
     Dosage: UNK
     Route: 047

REACTIONS (7)
  - Scleral haemorrhage [Recovered/Resolved]
  - Liquid product physical issue [Unknown]
  - Product dispensing issue [Unknown]
  - Product delivery mechanism issue [Unknown]
  - Ocular discomfort [Recovered/Resolved]
  - Blepharitis [Recovered/Resolved]
  - Therapeutic product effect decreased [Recovered/Resolved]

NARRATIVE: CASE EVENT DATE: 20220206
